FAERS Safety Report 23993044 (Version 2)
Quarter: 2025Q3

REPORT INFORMATION
  Report Type: Report from Study
  Country: US (occurrence: US)
  Receive Date: 20240620
  Receipt Date: 20250814
  Transmission Date: 20251021
  Serious: No
  Sender: TAKEDA
  Company Number: US-TAKEDA-2023TUS019076

PATIENT
  Sex: Female

DRUGS (26)
  1. IXAZOMIB [Suspect]
     Active Substance: IXAZOMIB
     Indication: Plasma cell myeloma
  2. IXAZOMIB [Suspect]
     Active Substance: IXAZOMIB
  3. ACETAMINOPHEN [Concomitant]
     Active Substance: ACETAMINOPHEN
  4. ASPIRIN [Concomitant]
     Active Substance: ASPIRIN
  5. ATIVAN [Concomitant]
     Active Substance: LORAZEPAM
  6. ATORVASTATIN [Concomitant]
     Active Substance: ATORVASTATIN
  7. CALCIUM CARBONATE\VITAMIN D [Concomitant]
     Active Substance: CALCIUM CARBONATE\VITAMIN D
  8. VITAMINS [Concomitant]
     Active Substance: VITAMINS
  9. DARZALEX [Concomitant]
     Active Substance: DARATUMUMAB
  10. DEXAMETHASONE [Concomitant]
     Active Substance: DEXAMETHASONE
  11. FENTANYL [Concomitant]
     Active Substance: FENTANYL
  12. FERROUS SULFATE [Concomitant]
     Active Substance: FERROUS SULFATE
  13. FOLIC ACID [Concomitant]
     Active Substance: FOLIC ACID
  14. HYDROMORPHONE [Concomitant]
     Active Substance: HYDROMORPHONE
  15. LENALIDOMIDE [Concomitant]
     Active Substance: LENALIDOMIDE
  16. LEVOTHYROXINE [Concomitant]
     Active Substance: LEVOTHYROXINE
  17. LYRICA [Concomitant]
     Active Substance: PREGABALIN
  18. MELATONIN [Concomitant]
     Active Substance: MELATONIN
  19. MIRALAX [Concomitant]
     Active Substance: POLYETHYLENE GLYCOL 3350
  20. MIRTAZAPINE [Concomitant]
     Active Substance: MIRTAZAPINE
  21. MORPHINE SULFATE [Concomitant]
     Active Substance: MORPHINE SULFATE
  22. OXYCODONE [Concomitant]
     Active Substance: OXYCODONE
  23. PEPCID [Concomitant]
     Active Substance: FAMOTIDINE
  24. PRILOSEC OTC [Concomitant]
     Active Substance: OMEPRAZOLE MAGNESIUM
  25. SINGULAIR [Concomitant]
     Active Substance: MONTELUKAST SODIUM
  26. VALACYCLOVIR [Concomitant]
     Active Substance: VALACYCLOVIR HYDROCHLORIDE

REACTIONS (3)
  - Diarrhoea [Unknown]
  - Product dose omission issue [Unknown]
  - Product distribution issue [Unknown]
